FAERS Safety Report 16219186 (Version 2)
Quarter: 2019Q2

REPORT INFORMATION
  Report Type: Spontaneous
  Country: FR (occurrence: FR)
  Receive Date: 20190419
  Receipt Date: 20190517
  Transmission Date: 20190711
  Serious: Yes (Other)
  Sender: FDA-Public Use
  Company Number: FR-ALLERGAN-1917070US

PATIENT
  Sex: Male

DRUGS (2)
  1. RISEDRONATE SODIUM - BP [Suspect]
     Active Substance: RISEDRONATE SODIUM
     Dosage: 2 TABLETS (75 MG) OVER 2 DAYS DURING 1 MONTH
     Route: 048
     Dates: start: 20181220
  2. RISEDRONATE SODIUM - BP [Suspect]
     Active Substance: RISEDRONATE SODIUM
     Indication: PRODUCT USED FOR UNKNOWN INDICATION
     Dosage: 35 MG; Q WEEK; DURING 2 MONTHS
     Route: 048
     Dates: start: 201901

REACTIONS (4)
  - Diarrhoea [Unknown]
  - Abdominal pain [Unknown]
  - Dyspepsia [Unknown]
  - Rectal haemorrhage [Unknown]
